FAERS Safety Report 17506012 (Version 1)
Quarter: 2020Q1

REPORT INFORMATION
  Report Type: Spontaneous
  Country: US (occurrence: US)
  Receive Date: 20200305
  Receipt Date: 20200305
  Transmission Date: 20200409
  Serious: No
  Sender: FDA-Public Use
  Company Number: US-ROCHE-2379780

PATIENT
  Age: 26 Year
  Sex: Female

DRUGS (5)
  1. ZANTAC [Concomitant]
     Active Substance: RANITIDINE HYDROCHLORIDE
     Route: 065
  2. DOXEPIN [Concomitant]
     Active Substance: DOXEPIN
     Dosage: EVERY NIGHT AT BEDTIME
     Route: 065
  3. XOLAIR [Suspect]
     Active Substance: OMALIZUMAB
     Indication: CHRONIC SPONTANEOUS URTICARIA
     Route: 065
     Dates: start: 2014
  4. XOLAIR [Suspect]
     Active Substance: OMALIZUMAB
     Route: 065
  5. XYZAL [Concomitant]
     Active Substance: LEVOCETIRIZINE DIHYDROCHLORIDE
     Route: 065

REACTIONS (2)
  - Feeling abnormal [Unknown]
  - Fatigue [Unknown]
